FAERS Safety Report 8558215 (Version 5)
Quarter: 2013Q2

REPORT INFORMATION
  Report Type: Spontaneous
  Country: US (occurrence: US)
  Receive Date: 20120511
  Receipt Date: 20130507
  Transmission Date: 20140414
  Serious: Yes (Hospitalization)
  Sender: FDA-Public Use
  Company Number: US-GLAXOSMITHKLINE-A0947245A

PATIENT
  Age: 64 Year
  Sex: Female

DRUGS (2)
  1. TYKERB [Suspect]
     Indication: BREAST CANCER FEMALE
     Dosage: 1250MG PER DAY
     Route: 048
  2. XELODA [Concomitant]

REACTIONS (5)
  - Breast cancer recurrent [Unknown]
  - Menopausal symptoms [Unknown]
  - Temperature regulation disorder [Unknown]
  - Hyperhidrosis [Unknown]
  - Breast mass [Unknown]
